FAERS Safety Report 10809697 (Version 1)
Quarter: 2015Q1

REPORT INFORMATION
  Report Type: Report from Study
  Country: US (occurrence: US)
  Receive Date: 20150217
  Receipt Date: 20150217
  Transmission Date: 20150721
  Serious: No
  Sender: FDA-Public Use
  Company Number: US-ABBVIE-14K-163-1222549-00

PATIENT
  Sex: Female

DRUGS (5)
  1. PREDNISONE. [Suspect]
     Active Substance: PREDNISONE
     Indication: PRODUCT USED FOR UNKNOWN INDICATION
     Dosage: TAPERING DOSE: DECREASE DOSE BY 5 MG FOR EVERY 5 DAYS
  2. PREDNISONE. [Suspect]
     Active Substance: PREDNISONE
  3. HUMIRA [Suspect]
     Active Substance: ADALIMUMAB
     Indication: COLITIS ULCERATIVE
     Dosage: FOUR 40 MG INJECTION
     Route: 050
     Dates: start: 20140214, end: 20140214
  4. HUMIRA [Suspect]
     Active Substance: ADALIMUMAB
     Dosage: TWO 40 MG INJECTION
     Route: 050
     Dates: start: 20140303, end: 20140303
  5. HUMIRA [Suspect]
     Active Substance: ADALIMUMAB
     Dosage: TWO 40 MG INJECTION
     Route: 050
     Dates: start: 2014

REACTIONS (5)
  - Insomnia [Recovering/Resolving]
  - Blood glucose decreased [Recovering/Resolving]
  - Colitis ulcerative [Recovering/Resolving]
  - Faeces discoloured [Recovering/Resolving]
  - White blood cell count increased [Recovering/Resolving]

NARRATIVE: CASE EVENT DATE: 2014
